FAERS Safety Report 5633317-3 (Version None)
Quarter: 2008Q1

REPORT INFORMATION
  Report Type: 
  Country: None (occurrence: None)
  Receive Date: 20080221
  Receipt Date: 20080213
  Transmission Date: 20080703
  Serious: Yes (Other)
  Sender: FDA-Public Use
  Company Number: SE-JNJFOC-20080202640

PATIENT
  Age: 25 Year
  Sex: Male

DRUGS (4)
  1. HALDOL [Suspect]
     Route: 048
  2. HALDOL [Suspect]
     Indication: DRUG USE FOR UNKNOWN INDICATION
     Route: 048
  3. RISPERDAL [Suspect]
     Indication: DRUG USE FOR UNKNOWN INDICATION
     Route: 048
  4. RISPERIDONE [Suspect]
     Indication: DRUG USE FOR UNKNOWN INDICATION

REACTIONS (16)
  - APATHY [None]
  - CHEST PAIN [None]
  - DEPRESSED MOOD [None]
  - DYSPNOEA [None]
  - GROWTH RETARDATION [None]
  - IMPAIRED SELF-CARE [None]
  - INCONTINENCE [None]
  - JUDGEMENT IMPAIRED [None]
  - MENTAL IMPAIRMENT [None]
  - MUSCLE RIGIDITY [None]
  - NAUSEA [None]
  - PAIN [None]
  - READING DISORDER [None]
  - TACHYCARDIA [None]
  - TRISMUS [None]
  - WEIGHT INCREASED [None]
